FAERS Safety Report 8795000 (Version 2)
Quarter: 2012Q4

REPORT INFORMATION
  Report Type: 
  Country: US (occurrence: DE)
  Receive Date: 20120917
  Receipt Date: 20121119
  Transmission Date: 20130627
  Serious: Yes (Congenital Anomaly)
  Sender: FDA-Public Use
  Company Number: US-009507513-1209USA003673

PATIENT
  Sex: Male

DRUGS (6)
  1. ISENTRESS [Suspect]
     Dosage: 800 mg, qd
     Route: 064
  2. TRIZIVIR [Suspect]
     Route: 064
  3. NORVIR [Suspect]
     Dosage: 200 mg, qd
     Route: 064
  4. VIREAD [Suspect]
     Dosage: 245 mg, qd
     Route: 064
  5. PREZISTA [Suspect]
     Dosage: 120 mg, qd
     Route: 064
  6. ANTIVIRAL (UNSPECIFIED) [Suspect]
     Route: 064

REACTIONS (6)
  - Premature baby [Unknown]
  - Spinal deformity [Unknown]
  - Maternal drugs affecting foetus [Unknown]
  - Hemivertebra [Unknown]
  - Oesophageal atresia [Unknown]
  - Foetal exposure during pregnancy [Recovered/Resolved]
